FAERS Safety Report 8499818-8 (Version None)
Quarter: 2012Q3

REPORT INFORMATION
  Report Type: 
  Country: None (occurrence: None)
  Receive Date: 20120703
  Receipt Date: 20120703
  Transmission Date: 20120928
  Serious: Yes (Other)
  Sender: FDA-Public Use
  Company Number: None

PATIENT
  Age: 55 Year
  Sex: Male
  Weight: 68.0396 kg

DRUGS (2)
  1. LISTERINE WHITENING PRE-BRUSH RINSE VIBRANT WHITE (ORAL CARE PRODUCTS) [Suspect]
     Indication: ACCIDENTAL EXPOSURE
     Dosage: , 1 IN 1 DAY, INHALATION
     Route: 055
     Dates: start: 20110101, end: 20110101
  2. . [Concomitant]

REACTIONS (3)
  - LUNG DISORDER [None]
  - FOREIGN BODY ASPIRATION [None]
  - PAIN [None]
